FAERS Safety Report 14278880 (Version 1)
Quarter: 2017Q4

REPORT INFORMATION
  Report Type: Spontaneous
  Country: US (occurrence: US)
  Receive Date: 20171212
  Receipt Date: 20171212
  Transmission Date: 20180321
  Serious: Yes (Other)
  Sender: FDA-Public Use
  Company Number: US-AKORN PHARMACEUTICALS-2017AKN01347

PATIENT
  Age: 24 Year
  Sex: Male
  Weight: 97.52 kg

DRUGS (4)
  1. MYORISAN [Suspect]
     Active Substance: ISOTRETINOIN
     Indication: ACNE
     Dosage: 40 MG, 1X/WEEK
     Route: 048
     Dates: start: 20170425, end: 20170715
  2. CLARAVIS [Suspect]
     Active Substance: ISOTRETINOIN
     Indication: ACNE
     Dosage: 40 MG, 1X/WEEK
     Route: 048
     Dates: start: 20170615, end: 20170715
  3. MYORISAN [Suspect]
     Active Substance: ISOTRETINOIN
     Indication: ACNE
     Dosage: 20 MG, 2X/WEEK
     Route: 048
     Dates: start: 20170717, end: 20171111
  4. RESORCINOL-SULFUR [Concomitant]

REACTIONS (3)
  - Off label use [Recovered/Resolved]
  - Drug dose omission [Recovered/Resolved]
  - Mood altered [Recovering/Resolving]

NARRATIVE: CASE EVENT DATE: 2017
